FAERS Safety Report 16347036 (Version 1)
Quarter: 2019Q2

REPORT INFORMATION
  Report Type: Spontaneous
  Country: US (occurrence: US)
  Receive Date: 20190523
  Receipt Date: 20190523
  Transmission Date: 20190711
  Serious: No
  Sender: FDA-Public Use
  Company Number: US-TARO-2018TAR00487

PATIENT
  Sex: Female
  Weight: 15.87 kg

DRUGS (3)
  1. CETAPHIL NOS [Concomitant]
     Active Substance: AVOBENZONE\OCTOCRYLENE OR TRICLOSAN
     Route: 061
  2. TRIAMCINOLONE ACETONIDE CREAM USP 0.1%. [Suspect]
     Active Substance: TRIAMCINOLONE ACETONIDE
     Indication: ECZEMA
     Dosage: APPLYING A LIGHT LAYER, AS NEEDED
     Route: 061
     Dates: start: 2016
  3. HYDROCORTISONE 2.5% (PERRIGO) [Suspect]
     Active Substance: HYDROCORTISONE
     Indication: ECZEMA
     Dosage: UNK, AS NEEDED
     Route: 061

REACTIONS (1)
  - Skin discolouration [Not Recovered/Not Resolved]

NARRATIVE: CASE EVENT DATE: 2018
